FAERS Safety Report 10234859 (Version 2)
Quarter: 2014Q2

REPORT INFORMATION
  Report Type: Spontaneous
  Country: GR (occurrence: GR)
  Receive Date: 20140613
  Receipt Date: 20140613
  Transmission Date: 20141212
  Serious: Yes (Other)
  Sender: FDA-Public Use
  Company Number: GR-AMGEN INC.-GRCSP2014039310

PATIENT
  Age: 79 Year
  Sex: Female

DRUGS (2)
  1. PROLIA [Suspect]
     Indication: OSTEOPOROSIS
     Dosage: 60 MG, Q6MO
     Route: 065
  2. ATORVA [Concomitant]

REACTIONS (5)
  - Skin exfoliation [Unknown]
  - Cellulitis [Unknown]
  - Peripheral venous disease [Unknown]
  - Injury [Unknown]
  - Skin ulcer [Unknown]
